FAERS Safety Report 19122418 (Version 11)
Quarter: 2025Q4

REPORT INFORMATION
  Report Type: Report from Study
  Country: US (occurrence: US)
  Receive Date: 20210412
  Receipt Date: 20251216
  Transmission Date: 20260118
  Serious: Yes (Hospitalization, Other)
  Sender: TAKEDA
  Company Number: US-TAKEDA-US201848078

PATIENT
  Age: 71 Year
  Sex: Female

DRUGS (4)
  1. HUMAN IMMUNOGLOBULIN G [Suspect]
     Active Substance: HUMAN IMMUNOGLOBULIN G
     Indication: IgG deficiency
     Dosage: UNK
  2. HUMAN IMMUNOGLOBULIN G [Suspect]
     Active Substance: HUMAN IMMUNOGLOBULIN G
     Indication: Primary immunodeficiency syndrome
     Dosage: UNK UNK, MONTHLY
  3. GAMMAGARD [Suspect]
     Active Substance: HUMAN IMMUNOGLOBULIN G
     Indication: Product used for unknown indication
     Dosage: UNK
  4. VIVITROL [Suspect]
     Active Substance: NALTREXONE
     Indication: Alcoholism
     Dosage: 380 MILLIGRAM, MONTHLY
     Dates: start: 202508

REACTIONS (18)
  - Blood test abnormal [Unknown]
  - Breast cancer female [Unknown]
  - Systemic lupus erythematosus [Unknown]
  - Fatigue [Unknown]
  - Osteoporosis [Recovered/Resolved]
  - Fall [Recovered/Resolved]
  - Spinal fracture [Recovered/Resolved]
  - COVID-19 [Recovered/Resolved]
  - Stress [Unknown]
  - Memory impairment [Unknown]
  - Product dose omission issue [Unknown]
  - Headache [Unknown]
  - Blood pressure decreased [Unknown]
  - Sleep apnoea syndrome [Unknown]
  - Vertigo [Unknown]
  - Asthenia [Unknown]
  - Anaemia [Unknown]
  - Malaise [Unknown]

NARRATIVE: CASE EVENT DATE: 20250501
